FAERS Safety Report 15392965 (Version 2)
Quarter: 2018Q4

REPORT INFORMATION
  Report Type: Spontaneous
  Country: US (occurrence: US)
  Receive Date: 20180917
  Receipt Date: 20181109
  Transmission Date: 20190204
  Serious: No
  Sender: FDA-Public Use
  Company Number: US-ASTRAZENECA-2018SF10023

PATIENT
  Sex: Female
  Weight: 70.3 kg

DRUGS (1)
  1. BYDUREON BCISE [Suspect]
     Active Substance: EXENATIDE
     Indication: TYPE 2 DIABETES MELLITUS
     Route: 058

REACTIONS (4)
  - Injection site pain [Unknown]
  - Injection site mass [Not Recovered/Not Resolved]
  - Product dose omission [Recovered/Resolved]
  - Device issue [Unknown]
